FAERS Safety Report 9543781 (Version 1)
Quarter: 2013Q3

REPORT INFORMATION
  Report Type: Spontaneous
  Country: US (occurrence: US)
  Receive Date: 20130923
  Receipt Date: 20130923
  Transmission Date: 20140515
  Serious: Yes (Other)
  Sender: FDA-Public Use
  Company Number: US-UCBSA-097772

PATIENT
  Age: 34 Year
  Sex: Female
  Weight: 59 kg

DRUGS (7)
  1. CIMZIA [Suspect]
     Indication: RHEUMATOID ARTHRITIS
     Route: 058
  2. ENBREL [Suspect]
     Indication: RHEUMATOID ARTHRITIS
     Route: 058
     Dates: start: 20130124, end: 20130416
  3. PREDNISONE [Concomitant]
  4. CALCIUM W/VITAMIN D [Concomitant]
  5. MULTIVITAMINS [Concomitant]
  6. PNEUMOCOCCAL VACCINE [Concomitant]
     Dates: start: 20130402
  7. TRAMADOL [Concomitant]

REACTIONS (2)
  - Abortion spontaneous [Unknown]
  - Pregnancy [Recovered/Resolved]
